FAERS Safety Report 24593560 (Version 1)
Quarter: 2024Q4

REPORT INFORMATION
  Report Type: Other
  Country: BG (occurrence: BG)
  Receive Date: 20241108
  Receipt Date: 20241108
  Transmission Date: 20250114
  Serious: Yes (Other)
  Sender: EMD SERONO INC
  Company Number: BG-Merck Healthcare KGaA-2024057869

PATIENT
  Age: 80 Year
  Sex: Female

DRUGS (6)
  1. BISOPROLOL FUMARATE [Suspect]
     Active Substance: BISOPROLOL FUMARATE
     Indication: Hypertension
     Dosage: AS NEEDED?SINCE 17 YEARS
     Dates: start: 2007
  2. METFORMIN HYDROCHLORIDE [Suspect]
     Active Substance: METFORMIN HYDROCHLORIDE
     Indication: Type 2 diabetes mellitus
     Dosage: ONCE IN THE MORNING?SINCE 24 YEARS
     Dates: start: 2000
  3. GLICLAZIDE [Suspect]
     Active Substance: GLICLAZIDE
     Indication: Type 2 diabetes mellitus
     Dosage: ONCE IN THE MORNING?SINCE 24 YEARS
     Dates: start: 2000
  4. SOTALOL HYDROCHLORIDE [Suspect]
     Active Substance: SOTALOL HYDROCHLORIDE
     Indication: Hypertension
     Dosage: HALF A TABLET ADMINISTERED IN THE MORNING AND AT NOON?SINCE 2 YEARS
     Dates: start: 2022
  5. CANDESARTAN CILEXETIL\HYDROCHLOROTHIAZIDE [Suspect]
     Active Substance: CANDESARTAN CILEXETIL\HYDROCHLOROTHIAZIDE
     Indication: Hypertension
     Dosage: 16 MG/ 12.5 MG AS NEEDED?SINCE 2 YEARS
     Dates: start: 2022
  6. LERCANIDIPINE HYDROCHLORIDE [Suspect]
     Active Substance: LERCANIDIPINE HYDROCHLORIDE
     Indication: Hypertension
     Dosage: AS NEEDED?SINCE 2 YEARS
     Dates: start: 2022

REACTIONS (2)
  - Basal cell carcinoma [Recovered/Resolved]
  - Product contamination [Unknown]
